FAERS Safety Report 8470181-1 (Version None)
Quarter: 2012Q2

REPORT INFORMATION
  Report Type: 
  Country: None (occurrence: None)
  Receive Date: 20120621
  Receipt Date: 20120621
  Transmission Date: 20120825
  Serious: Yes (Other)
  Sender: FDA-Public Use
  Company Number: None

PATIENT
  Sex: Female

DRUGS (2)
  1. ABILIFY [Suspect]
     Indication: DEPRESSION
     Dosage: 5MG ONCE A DAY PO
     Route: 048
  2. VIIBRYD [Suspect]
     Indication: DEPRESSION
     Dosage: 20MG ONCE A DY PO
     Route: 048

REACTIONS (5)
  - MALAISE [None]
  - DIARRHOEA [None]
  - BLOOD GLUCOSE INCREASED [None]
  - DIZZINESS [None]
  - VOMITING [None]
